FAERS Safety Report 23746447 (Version 1)
Quarter: 2024Q2

REPORT INFORMATION
  Report Type: Spontaneous
  Country: CA (occurrence: None)
  Receive Date: 20240416
  Receipt Date: 20240416
  Transmission Date: 20240716
  Serious: Yes (Other)
  Sender: FDA-Public Use
  Company Number: CA-PFIZER INC-202300435623

PATIENT
  Age: 56 Year
  Sex: Male

DRUGS (3)
  1. METHOTREXATE [Suspect]
     Active Substance: METHOTREXATE
     Indication: Product used for unknown indication
     Dosage: UNK
  2. ABRILADA [Suspect]
     Active Substance: ADALIMUMAB-AFZB
     Indication: Rheumatoid arthritis
     Dosage: 40 MG, EVERY OTHER WEEK
     Dates: start: 20231230
  3. LEFLUNOMIDE [Concomitant]
     Active Substance: LEFLUNOMIDE
     Dosage: UNK

REACTIONS (2)
  - Immunosuppression [Unknown]
  - Nasopharyngitis [Not Recovered/Not Resolved]

NARRATIVE: CASE EVENT DATE: 20240301
